FAERS Safety Report 7273560-3 (Version None)
Quarter: 2011Q1

REPORT INFORMATION
  Report Type: 
  Country: None (occurrence: None)
  Receive Date: 20110203
  Receipt Date: 20101006
  Transmission Date: 20110831
  Serious: No
  Sender: FDA-Public Use
  Company Number: US-ABBOTT-10P-163-0677166-00

PATIENT
  Sex: Female
  Weight: 86.26 kg

DRUGS (4)
  1. SONATA [Concomitant]
     Indication: INSOMNIA
  2. LEVOTHYROXINE [Suspect]
     Indication: AUTOIMMUNE THYROIDITIS
     Dates: start: 20000101
  3. SYNTHROID [Suspect]
     Indication: AUTOIMMUNE THYROIDITIS
     Dates: start: 19790101
  4. AMBIEN [Concomitant]
     Indication: INSOMNIA

REACTIONS (4)
  - COELIAC DISEASE [None]
  - OESOPHAGITIS [None]
  - FLATULENCE [None]
  - DYSPEPSIA [None]
